FAERS Safety Report 14247522 (Version 4)
Quarter: 2018Q1

REPORT INFORMATION
  Report Type: Spontaneous
  Country: JP (occurrence: JP)
  Receive Date: 20171204
  Receipt Date: 20180320
  Transmission Date: 20180508
  Serious: Yes (Death, Hospitalization)
  Sender: FDA-Public Use
  Company Number: JP-JNJFOC-20171200592

PATIENT
  Age: 78 Year
  Sex: Male
  Weight: 43 kg

DRUGS (15)
  1. URIEF [Concomitant]
     Active Substance: SILODOSIN
     Indication: DYSURIA
     Route: 048
     Dates: start: 20170307, end: 20171212
  2. GONAX [Concomitant]
     Active Substance: DEGARELIX
     Indication: PROSTATE CANCER
     Route: 058
     Dates: start: 20170105, end: 20180109
  3. CLOBETASOL PROPIONATE. [Concomitant]
     Active Substance: CLOBETASOL PROPIONATE
     Indication: TOXIC EPIDERMAL NECROLYSIS
     Route: 065
     Dates: start: 20171127
  4. MONOAMMONIUM GLYCYRRHIZINATE [Concomitant]
     Active Substance: AMMONIUM GLYCYRRHIZATE
     Indication: TOXIC EPIDERMAL NECROLYSIS
     Route: 065
     Dates: start: 20171127
  5. PREDONINE [Concomitant]
     Active Substance: PREDNISOLONE
     Indication: PROSTATE CANCER
     Route: 048
     Dates: start: 20170724, end: 201801
  6. BETAMETHASONE. [Concomitant]
     Active Substance: BETAMETHASONE
     Indication: TOXIC EPIDERMAL NECROLYSIS
     Route: 065
     Dates: start: 20171127
  7. L-CYSTEINE HYDROCHLORIDE [Concomitant]
     Active Substance: CYSTEINE HYDROCHLORIDE
     Indication: TOXIC EPIDERMAL NECROLYSIS
     Route: 065
     Dates: start: 20171127
  8. SILVER SULFADIAZENE [Concomitant]
     Active Substance: SILVER SULFADIAZINE
     Indication: TOXIC EPIDERMAL NECROLYSIS
     Route: 065
     Dates: start: 20171201
  9. ZYTIGA [Suspect]
     Active Substance: ABIRATERONE ACETATE
     Indication: PROSTATE CANCER
     Dosage: RECEIVED TREATMENT FOR APPROXIMATELY 10 DAYS
     Route: 048
     Dates: start: 20171108, end: 20171126
  10. ZOLEDRONIC ACID [Suspect]
     Active Substance: ZOLEDRONIC ACID
     Indication: METASTASES TO BONE
     Route: 042
     Dates: start: 20171031
  11. CALONAL [Concomitant]
     Active Substance: ACETAMINOPHEN
     Indication: ANALGESIC THERAPY
     Route: 048
     Dates: start: 20170424, end: 20171227
  12. ZINC OXIDE. [Concomitant]
     Active Substance: ZINC OXIDE
     Indication: TOXIC EPIDERMAL NECROLYSIS
     Route: 065
     Dates: start: 20171201
  13. CELECOX [Concomitant]
     Active Substance: CELECOXIB
     Indication: ANALGESIC THERAPY
     Route: 048
     Dates: start: 20170424, end: 201801
  14. CHLORPHENIRAMINE MALEATE. [Concomitant]
     Active Substance: CHLORPHENIRAMINE MALEATE
     Indication: TOXIC EPIDERMAL NECROLYSIS
     Route: 065
     Dates: start: 20171127
  15. GLYCINE. [Concomitant]
     Active Substance: GLYCINE
     Indication: TOXIC EPIDERMAL NECROLYSIS
     Route: 065
     Dates: start: 20171127

REACTIONS (2)
  - Toxic epidermal necrolysis [Recovering/Resolving]
  - Prostate cancer [Fatal]

NARRATIVE: CASE EVENT DATE: 20171117
